FAERS Safety Report 15407335 (Version 3)
Quarter: 2018Q4

REPORT INFORMATION
  Report Type: Spontaneous
  Country: CA (occurrence: CA)
  Receive Date: 20180920
  Receipt Date: 20181127
  Transmission Date: 20190204
  Serious: Yes (Hospitalization)
  Sender: FDA-Public Use
  Company Number: CA-PFIZER INC-2018374320

PATIENT
  Age: 58 Year
  Sex: Female

DRUGS (6)
  1. MINT DULOXETINE [Concomitant]
     Indication: ANXIETY
  2. EUROFOLIC [Suspect]
     Active Substance: LEVOLEUCOVORIN CALCIUM
     Dosage: 30 MG, WEEKLY (5 MG ONCE DAILY FOR 6 DAYS OF THE WEEK, NOT ON DAY OF TAKING METHOTREXATE)
     Dates: start: 2016
  3. INCRUSE ELLIPTA [Suspect]
     Active Substance: UMECLIDINIUM BROMIDE
     Indication: PRODUCTIVE COUGH
     Dosage: 62.5 UG, 1X/DAY
     Route: 055
     Dates: start: 2016
  4. METHOTREXATE SODIUM. [Suspect]
     Active Substance: METHOTREXATE SODIUM
     Dosage: 25 MG, WEEKLY
     Dates: start: 2016
  5. ENTOCORT EC [Suspect]
     Active Substance: BUDESONIDE
     Dosage: 6 MG, 1X/DAY
     Dates: start: 2016
  6. MINT DULOXETINE [Concomitant]
     Indication: DEPRESSION
     Dosage: 2 DF (CAPSULES), 1X/DAY
     Dates: start: 2008

REACTIONS (2)
  - Drug ineffective [Unknown]
  - Condition aggravated [Unknown]

NARRATIVE: CASE EVENT DATE: 2016
